APPROVED DRUG PRODUCT: TYBLUME
Active Ingredient: ETHINYL ESTRADIOL; LEVONORGESTREL
Strength: 0.02MG;0.1MG
Dosage Form/Route: TABLET;ORAL
Application: N209405 | Product #001
Applicant: EXELTIS USA INC
Approved: Mar 30, 2020 | RLD: Yes | RS: Yes | Type: RX